FAERS Safety Report 9171728 (Version 1)
Quarter: 2013Q1

REPORT INFORMATION
  Report Type: Spontaneous
  Country: HU (occurrence: None)
  Receive Date: 20130128
  Receipt Date: 20130128
  Transmission Date: 20140127
  Serious: Yes (Other)
  Sender: FDA-Public Use
  Company Number: 2013034456

PATIENT
  Age: 34 Year
  Sex: Female

DRUGS (2)
  1. BERINERT P [Suspect]
     Indication: HEREDITARY ANGIOEDEMA
  2. DANAZOL [Suspect]
     Indication: HEREDITARY ANGIOEDEMA
     Dosage: 3 MONTHS BEFORE PREGNANCY IN  1998,  1999,  2X  IN  2009,  2010.

REACTIONS (10)
  - Abortion spontaneous [None]
  - Hereditary angioedema [None]
  - Exposure during breast feeding [None]
  - Exposure during pregnancy [None]
  - Condition aggravated [None]
  - Drug ineffective for unapproved indication [None]
  - Menstruation irregular [None]
  - Unwanted pregnancy [None]
  - Caesarean section [None]
  - Pregnancy [None]
